FAERS Safety Report 5165964-X (Version None)
Quarter: 2006Q4

REPORT INFORMATION
  Report Type: 
  Country: None (occurrence: None)
  Receive Date: 20061206
  Receipt Date: 20061110
  Transmission Date: 20070319
  Serious: Yes (Hospitalization)
  Sender: FDA-Public Use
  Company Number: GB-ABBOTT-06P-167-0349915-00

PATIENT
  Age: 14 Year
  Sex: Male

DRUGS (11)
  1. SEVOFLURANE [Suspect]
     Indication: ANAESTHESIA
     Route: 055
     Dates: start: 20061108, end: 20061108
  2. PROPOFOL [Suspect]
     Indication: ANAESTHESIA
     Route: 042
     Dates: start: 20061108, end: 20061108
  3. METARAMINOL [Concomitant]
     Indication: DRUG USE FOR UNKNOWN INDICATION
     Route: 050
  4. CEFUROXIME [Concomitant]
     Indication: DRUG USE FOR UNKNOWN INDICATION
     Dates: start: 20061108
  5. DEXAMETHASONE [Concomitant]
     Indication: INFLAMMATION
     Route: 048
     Dates: start: 20061108
  6. DICLOFENAC SODIUM [Concomitant]
     Indication: PROCEDURAL PAIN
     Route: 048
     Dates: start: 20061109, end: 20061109
  7. MIDAZOLAM HYDROCHLORIDE [Concomitant]
     Indication: DRUG USE FOR UNKNOWN INDICATION
     Route: 042
     Dates: start: 20061108
  8. MORPHINE [Concomitant]
     Indication: DRUG USE FOR UNKNOWN INDICATION
     Dates: start: 20061108
  9. OMEPRAZOLE [Concomitant]
     Indication: GASTRIC PERFORATION
     Dates: start: 20061109
  10. ACETAMINOPHEN [Concomitant]
     Indication: DRUG USE FOR UNKNOWN INDICATION
     Route: 048
     Dates: start: 20061108
  11. RANITIDINE [Concomitant]
     Indication: GASTRIC PERFORATION
     Route: 048
     Dates: start: 20061103, end: 20061106

REACTIONS (5)
  - CARDIOVASCULAR DISORDER [None]
  - HEPATIC FUNCTION ABNORMAL [None]
  - HEPATOCELLULAR DAMAGE [None]
  - HEPATOTOXICITY [None]
  - METABOLIC ACIDOSIS [None]
